FAERS Safety Report 11789614 (Version 1)
Quarter: 2015Q4

REPORT INFORMATION
  Report Type: Spontaneous
  Country: US (occurrence: None)
  Receive Date: 20151130
  Receipt Date: 20151130
  Transmission Date: 20160305
  Serious: Yes (Hospitalization)
  Sender: FDA-Public Use
  Company Number: None

PATIENT
  Age: 21 Year
  Sex: Male
  Weight: 87.3 kg

DRUGS (1)
  1. PEGINTERFERON ALFA-2B (PEG-INTRON) [Suspect]
     Active Substance: PEGINTERFERON ALFA-2B
     Dates: end: 20151117

REACTIONS (5)
  - Somnolence [None]
  - Urine output decreased [None]
  - Hyponatraemia [None]
  - Hypernatraemia [None]
  - Hypokalaemia [None]

NARRATIVE: CASE EVENT DATE: 20151118
